FAERS Safety Report 21106594 (Version 1)
Quarter: 2022Q3

REPORT INFORMATION
  Report Type: Spontaneous
  Country: US (occurrence: US)
  Receive Date: 20220720
  Receipt Date: 20220720
  Transmission Date: 20221027
  Serious: Yes (Hospitalization)
  Sender: FDA-Public Use
  Company Number: US-MYLANLABS-2022M1079487

PATIENT
  Age: 21 Year
  Sex: Female

DRUGS (4)
  1. ACETAZOLAMIDE [Suspect]
     Active Substance: ACETAZOLAMIDE
     Indication: Intraocular pressure increased
     Dosage: 500 MILLIGRAM, QD
     Route: 048
  2. LATANOPROST [Suspect]
     Active Substance: LATANOPROST
     Indication: Intraocular pressure test abnormal
     Dosage: UNK
     Route: 061
  3. BRIMONIDINE [Suspect]
     Active Substance: BRIMONIDINE TARTRATE
     Indication: Intraocular pressure test abnormal
     Dosage: UNK
     Route: 065
  4. DORZOLAMIDE\TIMOLOL [Suspect]
     Active Substance: DORZOLAMIDE\TIMOLOL
     Indication: Intraocular pressure test abnormal
     Dosage: UNK
     Route: 065

REACTIONS (1)
  - Drug ineffective [Unknown]
